FAERS Safety Report 18508703 (Version 1)
Quarter: 2020Q4

REPORT INFORMATION
  Report Type: Spontaneous
  Country: US (occurrence: US)
  Receive Date: 20201117
  Receipt Date: 20201117
  Transmission Date: 20210114
  Serious: Yes (Hospitalization, Other)
  Sender: FDA-Public Use
  Company Number: US-ADVANZ PHARMA-202011010133

PATIENT

DRUGS (4)
  1. HYDROXYCHLOROQUINE [Suspect]
     Active Substance: HYDROXYCHLOROQUINE
     Indication: COVID-19
     Dosage: FIVE DOSES PER EXPERIMENTAL PROTOCOLS
     Route: 065
  2. TOCILIZUMAB. [Suspect]
     Active Substance: TOCILIZUMAB
     Indication: COVID-19
     Dosage: UNK UNK, SINGLE (ONE DOSE)
     Route: 065
  3. INTERLEUKIN-6 PSEUDOMONAS EXOTOXIN FUSION PROTEIN [Suspect]
     Active Substance: INTERLEUKIN-6 PSEUDOMONAS EXOTOXIN FUSION PROTEIN
     Indication: COVID-19
     Dosage: UNK
     Route: 065
  4. REMDESIVIR. [Suspect]
     Active Substance: REMDESIVIR
     Indication: COVID-19
     Dosage: UNK
     Route: 065

REACTIONS (8)
  - Gastrointestinal wall thickening [Unknown]
  - Blood immunoglobulin G increased [Unknown]
  - Cytomegalovirus colitis [Unknown]
  - Off label use [Unknown]
  - Hypovolaemic shock [Unknown]
  - Cytomegalovirus viraemia [Unknown]
  - Large intestinal ulcer [Unknown]
  - Diarrhoea [Unknown]
